FAERS Safety Report 25401005 (Version 1)
Quarter: 2025Q2

REPORT INFORMATION
  Report Type: Spontaneous
  Country: US (occurrence: None)
  Receive Date: 20250604
  Receipt Date: 20250604
  Transmission Date: 20250716
  Serious: Yes (unspecified)
  Sender: FDA-CTU
  Company Number: None

PATIENT
  Age: 68 Year
  Sex: Female
  Weight: 67.5 kg

DRUGS (2)
  1. PAROXETINE [Suspect]
     Active Substance: PAROXETINE
  2. PAXIL [Concomitant]
     Active Substance: PAROXETINE HYDROCHLORIDE

REACTIONS (13)
  - Drug withdrawal syndrome [None]
  - Influenza like illness [None]
  - Balance disorder [None]
  - Fall [None]
  - Fall [None]
  - Insomnia [None]
  - Pruritus [None]
  - Neuropathy peripheral [None]
  - Akathisia [None]
  - Depression [None]
  - Vomiting [None]
  - Tremor [None]
  - Emotional distress [None]

NARRATIVE: CASE EVENT DATE: 20230315
